FAERS Safety Report 21043243 (Version 1)
Quarter: 2022Q3

REPORT INFORMATION
  Report Type: Spontaneous
  Country: GB (occurrence: GB)
  Receive Date: 20220705
  Receipt Date: 20220705
  Transmission Date: 20221027
  Serious: Yes (Other)
  Sender: FDA-Public Use
  Company Number: None

PATIENT
  Age: 56 Year
  Sex: Female
  Weight: 80 kg

DRUGS (6)
  1. MOMETASONE FUROATE [Suspect]
     Active Substance: MOMETASONE FUROATE
     Dosage: 2 DF, UNK
     Dates: start: 20220606
  2. CHLORAMPHENICOL [Concomitant]
     Active Substance: CHLORAMPHENICOL
     Dosage: 1 DF, QID (DROPS)
     Dates: start: 20220606, end: 20220611
  3. CLARITHROMYCIN [Concomitant]
     Active Substance: CLARITHROMYCIN
     Dosage: 1 DF, BID
     Dates: start: 20220527, end: 20220603
  4. OTOMIZE [Concomitant]
     Dosage: 3 DF, UNK
     Dates: start: 20220523, end: 20220620
  5. XYLOMETAZOLINE HYDROCHLORIDE [Concomitant]
     Active Substance: XYLOMETAZOLINE HYDROCHLORIDE
     Dosage: 1 DF, UNK
     Dates: start: 20220622
  6. PENICILLIN V [Concomitant]
     Active Substance: PENICILLIN V
     Dosage: 1 DF, QID
     Dates: start: 20220523, end: 20220530

REACTIONS (7)
  - Depressed mood [Unknown]
  - Headache [Unknown]
  - Agitation [Unknown]
  - Abdominal pain [Unknown]
  - Fatigue [Unknown]
  - Dyspnoea [Unknown]
  - Nervousness [Unknown]

NARRATIVE: CASE EVENT DATE: 20220628
